FAERS Safety Report 24396670 (Version 4)
Quarter: 2025Q1

REPORT INFORMATION
  Report Type: Spontaneous
  Country: JP (occurrence: JP)
  Receive Date: 20241004
  Receipt Date: 20250103
  Transmission Date: 20250409
  Serious: No
  Sender: GALDERMA
  Company Number: JP-GALDERMA-JP2024012805

PATIENT

DRUGS (12)
  1. NEMOLIZUMAB [Suspect]
     Active Substance: NEMOLIZUMAB
     Indication: Dermatitis atopic
     Route: 058
     Dates: start: 20240713, end: 20240713
  2. NEMOLIZUMAB [Suspect]
     Active Substance: NEMOLIZUMAB
     Route: 058
     Dates: start: 20240810, end: 20240810
  3. NEMOLIZUMAB [Suspect]
     Active Substance: NEMOLIZUMAB
     Route: 058
     Dates: start: 20240928, end: 20240928
  4. NEMOLIZUMAB [Suspect]
     Active Substance: NEMOLIZUMAB
     Route: 058
     Dates: start: 20241029, end: 20241029
  5. NEMOLIZUMAB [Suspect]
     Active Substance: NEMOLIZUMAB
     Route: 058
     Dates: start: 20241202, end: 20241202
  6. BETAMETHASONE SODIUM PHOSPHATE [Concomitant]
     Active Substance: BETAMETHASONE SODIUM PHOSPHATE
     Indication: Dermatitis atopic
     Route: 061
  7. BETAMETHASONE DIPROPIONATE [Concomitant]
     Active Substance: BETAMETHASONE DIPROPIONATE
     Indication: Dermatitis atopic
     Route: 061
  8. PROTOPIC [Concomitant]
     Active Substance: TACROLIMUS
     Indication: Product used for unknown indication
     Route: 061
  9. HEPARINOID [Concomitant]
     Indication: Product used for unknown indication
     Route: 061
  10. PRANLUKAST [Concomitant]
     Active Substance: PRANLUKAST
     Indication: Asthma
     Route: 048
     Dates: start: 20221126
  11. LEVOCETIRIZINE HYDROCHLORIDE [Concomitant]
     Active Substance: LEVOCETIRIZINE HYDROCHLORIDE
     Indication: Rhinitis allergic
     Route: 048
  12. CARBOCYSTEINE [Concomitant]
     Active Substance: CARBOCYSTEINE
     Indication: Asthma
     Route: 048
     Dates: start: 20221126

REACTIONS (3)
  - Staphylococcal scalded skin syndrome [Recovered/Resolved]
  - Varicella [Recovered/Resolved]
  - Therapeutic response unexpected [Recovered/Resolved]

NARRATIVE: CASE EVENT DATE: 20240713
